FAERS Safety Report 8558018 (Version 2)
Quarter: 2013Q2

REPORT INFORMATION
  Report Type: Spontaneous
  Country: US (occurrence: US)
  Receive Date: 20120511
  Receipt Date: 20130510
  Transmission Date: 20140414
  Serious: No
  Sender: FDA-Public Use
  Company Number: US-GLAXOSMITHKLINE-A0926437A

PATIENT
  Sex: Female

DRUGS (2)
  1. TYKERB [Suspect]
     Indication: BREAST CANCER
     Dosage: 1250MG PER DAY
     Route: 065
     Dates: start: 20110330
  2. BLOOD PRESSURE MEDICATION [Suspect]
     Route: 065
     Dates: end: 20110415

REACTIONS (8)
  - Dizziness postural [Unknown]
  - Decreased appetite [Unknown]
  - Weight decreased [Unknown]
  - Diarrhoea [Unknown]
  - Skin fissures [Unknown]
  - Pain in extremity [Recovered/Resolved]
  - Neuropathy peripheral [Unknown]
  - Depression [Not Recovered/Not Resolved]
